FAERS Safety Report 6403297-1 (Version None)
Quarter: 2009Q4

REPORT INFORMATION
  Report Type: 
  Country: None (occurrence: None)
  Receive Date: 20091016
  Receipt Date: 20091006
  Transmission Date: 20100525
  Serious: Yes (Hospitalization)
  Sender: FDA-Public Use
  Company Number: JP-JNJFOC-20090708661

PATIENT
  Sex: Female
  Weight: 52.5 kg

DRUGS (18)
  1. REMICADE [Suspect]
     Dosage: REPORTED AS 2ND INFUSION; CONFLICTING INFORMATION
     Route: 042
     Dates: end: 20090227
  2. REMICADE [Suspect]
     Indication: RHEUMATOID ARTHRITIS
     Dosage: 1ST INFUSION
     Route: 042
     Dates: end: 20090227
  3. RHEUMATREX [Suspect]
     Route: 048
  4. RHEUMATREX [Suspect]
     Indication: RHEUMATOID ARTHRITIS
     Route: 048
  5. PREDONINE [Suspect]
     Indication: DRUG USE FOR UNKNOWN INDICATION
     Route: 048
  6. PREDNISOLONE [Suspect]
     Indication: DRUG USE FOR UNKNOWN INDICATION
     Route: 048
  7. MUCOSTA [Concomitant]
     Route: 048
  8. TAKEPRON [Concomitant]
     Route: 048
  9. GLAKAY [Concomitant]
     Route: 048
  10. DEPAS [Concomitant]
     Indication: ANXIETY DISORDER
     Route: 048
  11. FOLIAMIN [Concomitant]
     Route: 048
  12. HYPEN [Concomitant]
     Route: 048
  13. KAKKON-TO [Concomitant]
     Route: 048
  14. PURSENNID [Concomitant]
     Route: 048
  15. CATLEP [Concomitant]
     Dosage: DOSE OF 5 PAC
     Route: 050
  16. RIDAURA [Concomitant]
     Route: 048
  17. RIMATIL [Concomitant]
     Route: 048
  18. AZULFIDINE [Concomitant]
     Route: 048

REACTIONS (1)
  - PNEUMOCYSTIS JIROVECI PNEUMONIA [None]
